FAERS Safety Report 5794913-6 (Version None)
Quarter: 2008Q2

REPORT INFORMATION
  Report Type: 
  Country: None (occurrence: None)
  Receive Date: 20080627
  Receipt Date: 20080627
  Transmission Date: 20081010
  Serious: Yes (Death)
  Sender: FDA-Public Use
  Company Number: None

PATIENT
  Age: 79 Year
  Sex: Female

DRUGS (1)
  1. COLCHCINE 0.6MG [Suspect]
     Indication: GOUT
     Dates: start: 20080608, end: 20080608

REACTIONS (4)
  - ABDOMINAL PAIN [None]
  - ACIDOSIS [None]
  - INTESTINAL ISCHAEMIA [None]
  - VOMITING [None]
